FAERS Safety Report 4489381-0 (Version None)
Quarter: 2004Q4

REPORT INFORMATION
  Report Type: 
  Country: None (occurrence: None)
  Receive Date: 20041026
  Receipt Date: 20041015
  Transmission Date: 20050328
  Serious: Yes (Other)
  Sender: FDA-Public Use
  Company Number: 200412885GDS

PATIENT
  Age: 19 Year
  Sex: Male

DRUGS (10)
  1. CIPROFLOXACIN [Suspect]
     Indication: PNEUMONIA
     Dosage: INTRAVENOUS
     Route: 042
     Dates: start: 20040910, end: 20040921
  2. KETALAR [Suspect]
     Dosage: 4800 MG, DAILY, INTRAVENOUS
     Route: 042
     Dates: start: 20040801
  3. ACETAMINOPHEN [Suspect]
     Indication: PAIN
     Dosage: 2000 MG, TOTAL DAILY, ORAL
     Route: 048
     Dates: start: 20040831
  4. AUGMENTIN '125' [Suspect]
     Dosage: INTRAVENOUS
     Route: 042
     Dates: start: 20040906, end: 20040913
  5. GARAMYCIN [Suspect]
     Dosage: INTRAVENOUS
     Route: 042
     Dates: start: 20040913
  6. MERONEM (MEROPENEM) [Suspect]
     Dosage: INTRAVENOUS
     Route: 042
     Dates: start: 20040913
  7. TARGOCID [Suspect]
     Dosage: 200 MG , TOTAL DAILY
     Dates: start: 20040912
  8. HEPARIN [Suspect]
     Dosage: INTRAVENOUS
     Route: 042
     Dates: start: 20040831
  9. MAXIPIME [Suspect]
     Dosage: INTRAVENOUS
     Route: 042
     Dates: start: 20040905, end: 20040906
  10. DORICUM /GFR/ [Concomitant]

REACTIONS (2)
  - PYREXIA [None]
  - RHABDOMYOLYSIS [None]
